FAERS Safety Report 5075135-3 (Version None)
Quarter: 2006Q3

REPORT INFORMATION
  Report Type: 
  Country: None (occurrence: None)
  Receive Date: 20060809
  Receipt Date: 20050930
  Transmission Date: 20061208
  Serious: No
  Sender: FDA-Public Use
  Company Number: US-AMGEN-US152677

PATIENT
  Sex: Male
  Weight: 63 kg

DRUGS (6)
  1. EPOGEN [Suspect]
     Indication: DIALYSIS
     Route: 065
     Dates: start: 20050101
  2. HECTORAL [Concomitant]
     Route: 065
  3. NEPHRO-CAPS [Concomitant]
     Route: 065
  4. NEURONTIN [Concomitant]
     Route: 065
  5. RENAGEL [Concomitant]
     Route: 065
  6. INSULIN [Concomitant]
     Route: 065

REACTIONS (1)
  - PLATELET COUNT DECREASED [None]
